FAERS Safety Report 5275266-9 (Version None)
Quarter: 2007Q1

REPORT INFORMATION
  Report Type: 
  Country: None (occurrence: None)
  Receive Date: 20061213
  Receipt Date: 20060112
  Transmission Date: 20070707
  Serious: Yes (Disabling)
  Sender: FDA-Public Use
  Company Number: 2005UW11955

PATIENT
  Age: 32 Year
  Sex: Male
  Weight: 107.0489 kg

DRUGS (14)
  1. SEROQUEL [Suspect]
     Indication: BIPOLAR DISORDER
     Dosage: 300 MG HS PO
     Route: 048
     Dates: start: 20031101
  2. LEXAPRO [Concomitant]
  3. XANAX [Concomitant]
  4. ZOCOR [Concomitant]
  5. AVANDAMET [Concomitant]
  6. TRAZODONE HCL [Concomitant]
  7. PAXIL [Concomitant]
  8. DEPAKOTE [Concomitant]
  9. LAMICTAL ^BURROUGHS WELLCOME^ [Concomitant]
  10. EFFEXOR [Concomitant]
  11. ZYPREXA [Concomitant]
  12. RISPERDAL [Concomitant]
  13. REMERON [Concomitant]
  14. HYDROXYZINE HCL [Concomitant]

REACTIONS (4)
  - CARPAL TUNNEL SYNDROME [None]
  - DIABETES MELLITUS [None]
  - HEPATIC ENZYME INCREASED [None]
  - TONSILLITIS [None]
